FAERS Safety Report 6394058-0 (Version None)
Quarter: 2009Q4

REPORT INFORMATION
  Report Type: 
  Country: None (occurrence: None)
  Receive Date: 20091008
  Receipt Date: 20090925
  Transmission Date: 20100525
  Serious: Yes (Other)
  Sender: FDA-Public Use
  Company Number: US-PFIZER INC-2006012437

PATIENT
  Sex: Female

DRUGS (3)
  1. MEDROXYPROGESTERONE ACETATE TABLET [Suspect]
     Indication: HORMONE REPLACEMENT THERAPY
     Dosage: 10 MG, UNK
     Route: 048
     Dates: start: 20000101
  2. PREMPRO [Suspect]
     Indication: HORMONE REPLACEMENT THERAPY
     Dosage: 0.625/2.5 MG
     Dates: start: 19980201, end: 20011101
  3. PREMPHASE 14/14 [Suspect]
     Indication: HORMONE REPLACEMENT THERAPY
     Dosage: 0.625/5 MG
     Dates: start: 20000201, end: 20000701

REACTIONS (1)
  - BREAST CANCER FEMALE [None]
